FAERS Safety Report 4939531-4 (Version None)
Quarter: 2006Q1

REPORT INFORMATION
  Report Type: 
  Country: None (occurrence: None)
  Receive Date: 20060306
  Receipt Date: 20060223
  Transmission Date: 20060701
  Serious: Yes (Life-Threatening, Hospitalization)
  Sender: FDA-Public Use
  Company Number: 2006RR-01684

PATIENT
  Age: 37 Year
  Sex: Male

DRUGS (3)
  1. METFORMIN HCL [Suspect]
     Dosage: 45000 MG,
  2. GLYBURIDE [Suspect]
     Dosage: 150 MG
  3. ATORVASTATIN CALCIUM [Suspect]
     Dosage: 600 MG

REACTIONS (12)
  - BRADYCARDIA [None]
  - DISORIENTATION [None]
  - HAEMODIALYSIS [None]
  - HYPERTENSION [None]
  - HYPOTENSION [None]
  - HYPOTHERMIA [None]
  - INTENTIONAL OVERDOSE [None]
  - LACTIC ACIDOSIS [None]
  - LETHARGY [None]
  - RENAL FAILURE ACUTE [None]
  - RESPIRATORY FAILURE [None]
  - VENTRICULAR TACHYCARDIA [None]
